FAERS Safety Report 18224688 (Version 5)
Quarter: 2020Q4

REPORT INFORMATION
  Report Type: Report from Study
  Country: None (occurrence: CH)
  Receive Date: 20200903
  Receipt Date: 20201118
  Transmission Date: 20210113
  Serious: Yes (Hospitalization)
  Sender: FDA-Public Use
  Company Number: CH-ABBVIE-20K-151-3549980-00

PATIENT
  Age: 73 Year
  Sex: Male

DRUGS (3)
  1. DUODOPA [Suspect]
     Active Substance: CARBIDOPA\LEVODOPA
     Dosage: MD 14ML, CRD 4.7ML/H, CRN 0ML/H, ED 2ML,16H THERAPY
     Route: 050
     Dates: start: 20170216, end: 20170614
  2. DUODOPA [Suspect]
     Active Substance: CARBIDOPA\LEVODOPA
     Dosage: MD 14ML, CRD 4.5ML/H, CRN 0ML/H, ED 2ML,16H THERAPY
     Route: 050
     Dates: start: 20170614
  3. DUODOPA [Suspect]
     Active Substance: CARBIDOPA\LEVODOPA
     Indication: PARKINSON^S DISEASE
     Route: 050
     Dates: start: 20170207, end: 20170216

REACTIONS (2)
  - Dementia [Not Recovered/Not Resolved]
  - Fall [Unknown]

NARRATIVE: CASE EVENT DATE: 20200901
